FAERS Safety Report 9909123 (Version 1)
Quarter: 2014Q1

REPORT INFORMATION
  Report Type: Spontaneous
  Country: CA (occurrence: CA)
  Receive Date: 20140219
  Receipt Date: 20140219
  Transmission Date: 20141002
  Serious: Yes (Other)
  Sender: FDA-Public Use
  Company Number: CA-PFIZER INC-2014044393

PATIENT
  Age: 28 Year
  Sex: Male

DRUGS (6)
  1. MORPHINE SULFATE [Suspect]
     Dosage: UNK
     Route: 065
  2. OXYCONTIN [Suspect]
     Dosage: UNK
     Route: 065
  3. DILAUDID [Suspect]
     Dosage: UNK
     Route: 065
  4. PERCOCET [Suspect]
     Dosage: UNK
     Route: 065
  5. DIAZEPAM [Suspect]
     Dosage: UNK
     Route: 065
  6. OXYCONTIN [Suspect]
     Dosage: UNK
     Route: 065

REACTIONS (4)
  - Drug dependence [Unknown]
  - Substance abuse [Unknown]
  - Drug withdrawal syndrome [Unknown]
  - Needle track marks [Unknown]
